FAERS Safety Report 9970378 (Version 1)
Quarter: 2014Q1

REPORT INFORMATION
  Report Type: Spontaneous
  Country: US (occurrence: None)
  Receive Date: 20140305
  Receipt Date: 20140305
  Transmission Date: 20141002
  Serious: Yes (Life-Threatening, Hospitalization)
  Sender: FDA-Public Use
  Company Number: None

PATIENT
  Age: 85 Year
  Sex: Female
  Weight: 46.72 kg

DRUGS (2)
  1. POTASSIUM CHLORIDE [Suspect]
     Indication: ELECTROLYTE IMBALANCE
     Dosage: 5 PACKAGES OF 20 MEQ; J-TUBE (JEJUNOSTOMY TUBE)
  2. POTASSIUM CHLORIDE [Suspect]
     Indication: CARDIAC FAILURE CONGESTIVE
     Dosage: 5 PACKAGES OF 20 MEQ; J-TUBE (JEJUNOSTOMY TUBE)

REACTIONS (6)
  - Pulseless electrical activity [None]
  - Cardiac arrest [None]
  - Hyperkalaemia [None]
  - Wrong technique in drug usage process [None]
  - Bradycardia [None]
  - Wrong technique in drug usage process [None]
